FAERS Safety Report 7946422-3 (Version None)
Quarter: 2011Q4

REPORT INFORMATION
  Report Type: 
  Country: None (occurrence: None)
  Receive Date: 20111129
  Receipt Date: 20111118
  Transmission Date: 20120403
  Serious: Yes (Hospitalization)
  Sender: FDA-Public Use
  Company Number: US-BAYER-201037258NA

PATIENT
  Age: 30 Year
  Sex: Female
  Weight: 61.224 kg

DRUGS (2)
  1. YAZ [Suspect]
     Dosage: UNK
     Route: 048
     Dates: start: 20070101, end: 20090901
  2. LOESTRIN 1.5/30 [Concomitant]
     Dosage: UNK
     Dates: start: 20091201

REACTIONS (13)
  - CHOLECYSTITIS ACUTE [None]
  - ABDOMINAL DISTENSION [None]
  - EMOTIONAL DISTRESS [None]
  - WEIGHT INCREASED [None]
  - DEPRESSION [None]
  - FLATULENCE [None]
  - ABDOMINAL PAIN [None]
  - CONSTIPATION [None]
  - CHOLELITHIASIS [None]
  - DYSPEPSIA [None]
  - ANXIETY [None]
  - FEAR [None]
  - DIARRHOEA [None]
